FAERS Safety Report 9034387 (Version 1)
Quarter: 2013Q1

REPORT INFORMATION
  Report Type: Spontaneous
  Country: GB (occurrence: None)
  Receive Date: 20130111
  Receipt Date: 20130111
  Transmission Date: 20140127
  Serious: Yes (Other)
  Sender: FDA-Public Use
  Company Number: 2013-00016

PATIENT
  Age: 7 Decade
  Sex: Female
  Weight: 63.5 kg

DRUGS (3)
  1. SIMVASTATIN [Suspect]
     Indication: BLOOD CHOLESTEROL INCREASED
     Dosage: (20 MG, 1 IN 1D)
     Route: 048
     Dates: start: 2004, end: 201211
  2. DIAZEPAM [Concomitant]
  3. METFORMIN [Concomitant]

REACTIONS (5)
  - Anxiety [None]
  - Depression [None]
  - Nightmare [None]
  - Sleep disorder [None]
  - Poor quality sleep [None]
